FAERS Safety Report 9733839 (Version 6)
Quarter: 2015Q3

REPORT INFORMATION
  Report Type: Spontaneous
  Country: US (occurrence: US)
  Receive Date: 20131205
  Receipt Date: 20150706
  Transmission Date: 20151125
  Serious: Yes (Hospitalization, Disabling, Other)
  Sender: FDA-Public Use
  Company Number: US-009507513-1312USA001411

PATIENT
  Sex: Female

DRUGS (4)
  1. ALENDRONATE SODIUM. [Suspect]
     Active Substance: ALENDRONATE SODIUM
     Indication: RHEUMATOID ARTHRITIS
     Dosage: 70 MG, QW
     Route: 048
     Dates: start: 20080306, end: 20110412
  2. ALENDRONATE SODIUM. [Suspect]
     Active Substance: ALENDRONATE SODIUM
     Indication: OSTEOPOROSIS
  3. FOSAMAX [Suspect]
     Active Substance: ALENDRONATE SODIUM
     Indication: RHEUMATOID ARTHRITIS
     Dosage: 70 MG, QW
     Route: 048
     Dates: start: 20010905, end: 20110726
  4. FOSAMAX [Suspect]
     Active Substance: ALENDRONATE SODIUM
     Indication: OSTEOPOROSIS

REACTIONS (39)
  - Osteoporosis [Not Recovered/Not Resolved]
  - Femur fracture [Recovered/Resolved]
  - Lower limb fracture [Unknown]
  - White blood cell count increased [Unknown]
  - Internal fixation of fracture [Unknown]
  - Cystocele repair [Unknown]
  - Rectocele repair [Unknown]
  - Osteoarthritis [Unknown]
  - Compression fracture [Unknown]
  - Kyphosis [Unknown]
  - Fatigue [Unknown]
  - Memory impairment [Unknown]
  - Splenectomy [Unknown]
  - Haemoglobin abnormal [Recovered/Resolved]
  - Compression fracture [Unknown]
  - Haemolytic anaemia [Unknown]
  - Medical device complication [Unknown]
  - Bursitis [Unknown]
  - Patella fracture [Unknown]
  - Open reduction of fracture [Recovered/Resolved]
  - Knee arthroplasty [Unknown]
  - Thoracic vertebral fracture [Unknown]
  - Synovial cyst [Unknown]
  - Lactose intolerance [Unknown]
  - Drug hypersensitivity [Unknown]
  - Nervous system disorder [Unknown]
  - Off label use [Unknown]
  - Femur fracture [Recovered/Resolved]
  - Hysterectomy [Unknown]
  - Fall [Unknown]
  - Osteoarthritis [Unknown]
  - Macular degeneration [Unknown]
  - Gastrooesophageal reflux disease [Unknown]
  - Low turnover osteopathy [Not Recovered/Not Resolved]
  - Haemoglobin decreased [Recovering/Resolving]
  - Confusion postoperative [Recovering/Resolving]
  - Uterine polyp [Unknown]
  - Constipation [Unknown]
  - Drug ineffective [Unknown]

NARRATIVE: CASE EVENT DATE: 20010905
